FAERS Safety Report 19895909 (Version 1)
Quarter: 2021Q3

REPORT INFORMATION
  Report Type: Spontaneous
  Country: DE (occurrence: DE)
  Receive Date: 20210929
  Receipt Date: 20210929
  Transmission Date: 20211014
  Serious: Yes (Congenital Anomaly)
  Sender: FDA-Public Use
  Company Number: DE-DRREDDYS-SPO/GER/21/0140494

PATIENT
  Age: 0 Year
  Sex: Male
  Weight: 2.87 kg

DRUGS (2)
  1. FOLSAN [Concomitant]
     Active Substance: FOLIC ACID
     Indication: PRODUCT USED FOR UNKNOWN INDICATION
     Route: 064
     Dates: start: 20191015, end: 20200625
  2. LEVETIRACETAM. [Suspect]
     Active Substance: LEVETIRACETAM
     Indication: PRODUCT USED FOR UNKNOWN INDICATION
     Dosage: 1000 [MG/D ] 2 SEPARATED DOSES
     Route: 064
     Dates: start: 20191015, end: 20200313

REACTIONS (2)
  - Foetal exposure during pregnancy [Unknown]
  - Limb reduction defect [Not Recovered/Not Resolved]
